FAERS Safety Report 12484092 (Version 1)
Quarter: 2016Q2

REPORT INFORMATION
  Report Type: Spontaneous
  Country: NO (occurrence: NO)
  Receive Date: 20160621
  Receipt Date: 20160621
  Transmission Date: 20160815
  Serious: Yes (Life-Threatening)
  Sender: FDA-Public Use
  Company Number: NO-WATSON-2016-12764

PATIENT
  Age: 4 Year
  Sex: Female

DRUGS (6)
  1. PROPOFOL (UNKNOWN) [Suspect]
     Active Substance: PROPOFOL
     Indication: INDUCTION OF ANAESTHESIA
     Dosage: 50 MG, TOTAL
     Route: 065
     Dates: start: 20160526, end: 20160526
  2. ATROPIN /00002801/ [Suspect]
     Active Substance: ATROPINE
     Indication: PRODUCT USED FOR UNKNOWN INDICATION
     Dosage: 0.2 MG, TOTAL
     Route: 065
     Dates: start: 20160526, end: 20160526
  3. ORFIRIL [Concomitant]
     Active Substance: VALPROIC ACID
     Indication: PRODUCT USED FOR UNKNOWN INDICATION
     Dosage: UNK
     Route: 065
  4. FENTANYL (UNKNOWN) [Suspect]
     Active Substance: FENTANYL
     Indication: INDUCTION OF ANAESTHESIA
     Dosage: 50 ?G, TOTAL
     Route: 065
     Dates: start: 20160526, end: 20160526
  5. MIVACRON [Suspect]
     Active Substance: MIVACURIUM CHLORIDE
     Indication: ENDOTRACHEAL INTUBATION
     Dosage: 8 MG, TOTAL
     Route: 065
     Dates: start: 20160526, end: 20160526
  6. VENTOLINE                          /00139501/ [Concomitant]
     Active Substance: ALBUTEROL
     Indication: PRODUCT USED FOR UNKNOWN INDICATION
     Dosage: UNK
     Route: 065

REACTIONS (1)
  - Bronchospasm [Recovered/Resolved]

NARRATIVE: CASE EVENT DATE: 20160526
